FAERS Safety Report 5515366-9 (Version None)
Quarter: 2007Q4

REPORT INFORMATION
  Report Type: 
  Country: None (occurrence: None)
  Receive Date: 20071109
  Receipt Date: 20071026
  Transmission Date: 20080405
  Serious: Yes (Death, Life-Threatening, Hospitalization)
  Sender: FDA-Public Use
  Company Number: US020086

PATIENT
  Sex: Female
  Weight: 38.9 kg

DRUGS (12)
  1. TRISENOX [Suspect]
     Indication: MULTIPLE MYELOMA
     Dosage: 11.5 MG DAILY FOR 7 DAYS INTRAVENOUS DRIP
     Route: 041
     Dates: start: 20070131, end: 20070206
  2. ASCORBIC ACID [Concomitant]
  3. MELPHALAN [Concomitant]
  4. PROPOXYPHENE HC1 [Concomitant]
  5. ESTRADIOL [Concomitant]
  6. VALGANCICLOVIR HC1 [Concomitant]
  7. CALCIUM CARBONATE W/VITAMIN D [Concomitant]
  8. ISOSORBIDE MONONITRATE [Concomitant]
  9. HYDRALAZINE HCL [Concomitant]
  10. ALLOPURINOL [Concomitant]
  11. ESOMEPRAZOLE MAGNESIUM [Concomitant]
  12. FUROSEMIDE [Concomitant]

REACTIONS (22)
  - ANGINA PECTORIS [None]
  - BACTERAEMIA [None]
  - BACTERIA STOOL IDENTIFIED [None]
  - BENCE JONES PROTEIN URINE PRESENT [None]
  - CHEST PAIN [None]
  - CULTURE URINE POSITIVE [None]
  - DIALYSIS [None]
  - DISEASE PROGRESSION [None]
  - DRUG TOXICITY [None]
  - ENCEPHALOPATHY [None]
  - HYPERTENSION [None]
  - HYPERTRIGLYCERIDAEMIA [None]
  - MALNUTRITION [None]
  - MENTAL STATUS CHANGES [None]
  - MITRAL VALVE INCOMPETENCE [None]
  - MUCOSAL INFLAMMATION [None]
  - MYELOMA RECURRENCE [None]
  - PLEURAL EFFUSION [None]
  - PULMONARY OEDEMA [None]
  - RENAL FAILURE ACUTE [None]
  - RENAL TUBULAR NECROSIS [None]
  - STEM CELL TRANSPLANT [None]
